FAERS Safety Report 6733854-4 (Version None)
Quarter: 2010Q2

REPORT INFORMATION
  Report Type: 
  Country: None (occurrence: None)
  Receive Date: 20100520
  Receipt Date: 20100510
  Transmission Date: 20101027
  Serious: Yes (Other)
  Sender: FDA-Public Use
  Company Number: BR-ROCHE-576557

PATIENT
  Sex: Female
  Weight: 62 kg

DRUGS (8)
  1. ROACUTAN [Suspect]
     Indication: ACNE
     Dosage: OTHER INDICATION: SKIN OLEOSITY
     Route: 048
     Dates: start: 20080701
  2. ROACUTAN [Suspect]
     Route: 048
     Dates: start: 20080811, end: 20090211
  3. YAZ [Concomitant]
     Indication: CONTRACEPTION
     Dosage: START DATE: SOME YEARS AGO
  4. NEXIUM [Concomitant]
     Indication: GASTRIC DISORDER
     Dosage: START DATE: SOME YEARS AGO
  5. NATURETTI [Concomitant]
     Indication: CONSTIPATION
  6. MAGNESIUM HYDROXIDE TAB [Concomitant]
     Indication: GASTRIC DISORDER
     Dosage: DRUG: GELMAX.
  7. NIMESULIDE [Concomitant]
     Dosage: 'WHEN SHE HAD FLU'.
  8. DOMPERIDONE [Concomitant]
     Indication: GASTRIC DISORDER
     Dosage: BEFORE MEALS. START DATE: SOME YEARS AGO

REACTIONS (7)
  - DRY THROAT [None]
  - ERYTHEMA [None]
  - HEPATIC STEATOSIS [None]
  - HYPERAESTHESIA [None]
  - LIP DRY [None]
  - PRURITUS [None]
  - WOUND [None]
